FAERS Safety Report 8917208 (Version 2)
Quarter: 2013Q1

REPORT INFORMATION
  Report Type: Spontaneous
  Country: GB (occurrence: GB)
  Receive Date: 20121120
  Receipt Date: 20130102
  Transmission Date: 20140127
  Serious: Yes (Other)
  Sender: FDA-Public Use
  Company Number: GB-JNJFOC-20121106433

PATIENT
  Age: 14 None
  Sex: Male
  Weight: 62 kg

DRUGS (3)
  1. CONCERTA XL [Suspect]
     Indication: ATTENTION DEFICIT/HYPERACTIVITY DISORDER
     Route: 048
  2. CONCERTA XL [Suspect]
     Indication: ATTENTION DEFICIT/HYPERACTIVITY DISORDER
     Route: 048
     Dates: end: 20121204
  3. MELATONIN [Concomitant]
     Indication: INSOMNIA
     Route: 065

REACTIONS (2)
  - Gilbert^s syndrome [Not Recovered/Not Resolved]
  - Neutropenia [Unknown]
